FAERS Safety Report 5222381-1 (Version None)
Quarter: 2007Q1

REPORT INFORMATION
  Report Type: 
  Country: None (occurrence: None)
  Receive Date: 20070129
  Receipt Date: 20070118
  Transmission Date: 20070707
  Serious: Yes (Other)
  Sender: FDA-Public Use
  Company Number: 200615081EU

PATIENT
  Age: 44 Year
  Sex: Female

DRUGS (1)
  1. NICOTINE [Suspect]
     Route: 002
     Dates: start: 20050107, end: 20050415

REACTIONS (4)
  - APHTHOUS STOMATITIS [None]
  - GINGIVAL BLEEDING [None]
  - MOUTH ULCERATION [None]
  - PERIODONTITIS [None]
